FAERS Safety Report 22640647 (Version 1)
Quarter: 2023Q2

REPORT INFORMATION
  Report Type: Spontaneous
  Country: CN (occurrence: None)
  Receive Date: 20230626
  Receipt Date: 20230626
  Transmission Date: 20230722
  Serious: Yes (Hospitalization)
  Sender: FDA-Public Use
  Company Number: CN-ROCHE-3372659

PATIENT
  Age: 62 Year
  Sex: Female
  Weight: 56 kg

DRUGS (2)
  1. HERCEPTIN [Suspect]
     Active Substance: TRASTUZUMAB
     Indication: Breast cancer
     Dosage: FORM OF ADMIN. TEXT :INJECTION
     Route: 041
     Dates: start: 20230531, end: 20230531
  2. PACLITAXEL [Suspect]
     Active Substance: PACLITAXEL
     Indication: Breast cancer
     Route: 041
     Dates: start: 20230531, end: 20230531

REACTIONS (4)
  - Nausea [Recovering/Resolving]
  - Vomiting [Recovering/Resolving]
  - Myelosuppression [Recovering/Resolving]
  - Hepatic function abnormal [Recovering/Resolving]

NARRATIVE: CASE EVENT DATE: 20230603
